FAERS Safety Report 8155933-X (Version None)
Quarter: 2012Q1

REPORT INFORMATION
  Report Type: 
  Country: None (occurrence: None)
  Receive Date: 20120103
  Receipt Date: 20110915
  Transmission Date: 20120608
  Serious: No
  Sender: FDA-Public Use
  Company Number: AE-2011-000889

PATIENT
  Age: 50 Year
  Sex: Female
  Weight: 86.1834 kg

DRUGS (4)
  1. INCIVEK [Suspect]
     Dosage: (3 IN 1 D)
     Dates: start: 20110722
  2. PEGASYS [Concomitant]
  3. RIBAVIRIN [Concomitant]
  4. SUPPLEMENTS, VITAMINS AND MINERALS (VITAMINS, OTHER COMBINATIONS) [Concomitant]

REACTIONS (1)
  - RASH PRURITIC [None]
